FAERS Safety Report 6223615-7 (Version None)
Quarter: 2009Q2

REPORT INFORMATION
  Report Type: 
  Country: None (occurrence: None)
  Receive Date: 20090611
  Receipt Date: 20090402
  Transmission Date: 20091009
  Serious: No
  Sender: FDA-Public Use
  Company Number: US-ABBOTT-07P-163-0421851-00

PATIENT
  Sex: Male
  Weight: 93.524 kg

DRUGS (5)
  1. HUMIRA [Suspect]
     Indication: CROHN'S DISEASE
     Dates: start: 20070327, end: 20070424
  2. HUMIRA [Suspect]
     Dates: start: 20070227, end: 20070313
  3. HUMIRA [Suspect]
     Dates: start: 20070313, end: 20070327
  4. HUMIRA [Suspect]
     Dates: start: 20070424
  5. HUMIRA [Suspect]
     Dates: start: 20070102, end: 20080109

REACTIONS (6)
  - ABDOMINAL PAIN [None]
  - ASTHENIA [None]
  - CROHN'S DISEASE [None]
  - DIARRHOEA [None]
  - DRUG INEFFECTIVE [None]
  - VOMITING [None]
